FAERS Safety Report 23979127 (Version 1)
Quarter: 2024Q2

REPORT INFORMATION
  Report Type: Spontaneous
  Country: US (occurrence: US)
  Receive Date: 20240615
  Receipt Date: 20240615
  Transmission Date: 20240716
  Serious: Yes (Life-Threatening, Hospitalization)
  Sender: FDA-Public Use
  Company Number: US-MLMSERVICE-20240530-PI081249-00095-2

PATIENT
  Age: 52 Year
  Sex: Female

DRUGS (6)
  1. HYDROXYCHLOROQUINE [Suspect]
     Active Substance: HYDROXYCHLOROQUINE
     Indication: Arthritis
  2. LEFLUNOMIDE [Suspect]
     Active Substance: LEFLUNOMIDE
     Indication: Arthritis
  3. LEVOTHYROXINE [Concomitant]
     Active Substance: LEVOTHYROXINE\LEVOTHYROXINE SODIUM
  4. IBUPROFEN [Concomitant]
     Active Substance: IBUPROFEN
  5. PREDNISONE [Concomitant]
     Active Substance: PREDNISONE
     Indication: Arthritis
  6. PREDNISONE [Concomitant]
     Active Substance: PREDNISONE
     Indication: Arthritis

REACTIONS (6)
  - Pancreatitis acute [Recovered/Resolved]
  - Cytomegalovirus infection reactivation [Recovered/Resolved]
  - Drug reaction with eosinophilia and systemic symptoms [Recovering/Resolving]
  - Interstitial lung disease [Recovered/Resolved]
  - Pancreatic injury [Recovered/Resolved]
  - Cytomegalovirus hepatitis [Recovered/Resolved]
